FAERS Safety Report 5558530-5 (Version None)
Quarter: 2007Q4

REPORT INFORMATION
  Report Type: 
  Country: None (occurrence: None)
  Receive Date: 20071214
  Receipt Date: 20070902
  Transmission Date: 20080405
  Serious: No
  Sender: FDA-Public Use
  Company Number: US-ABBOTT-07P-163-0415812-00

PATIENT
  Sex: Female
  Weight: 57.658 kg

DRUGS (2)
  1. HUMIRA [Suspect]
     Indication: CROHN'S DISEASE
     Route: 058
     Dates: start: 20070807
  2. PREDNISONE [Concomitant]
     Indication: CROHN'S DISEASE
     Route: 048

REACTIONS (7)
  - BLISTER [None]
  - CONTUSION [None]
  - HYPERAESTHESIA [None]
  - HYPOAESTHESIA [None]
  - IMPAIRED HEALING [None]
  - MYALGIA [None]
  - PARAESTHESIA [None]
